FAERS Safety Report 20429113 (Version 1)
Quarter: 2022Q1

REPORT INFORMATION
  Report Type: Spontaneous
  Country: US (occurrence: US)
  Receive Date: 20220204
  Receipt Date: 20220204
  Transmission Date: 20220423
  Serious: No
  Sender: FDA-Public Use
  Company Number: US-BAYER-2022A013022

PATIENT
  Sex: Female

DRUGS (1)
  1. CLIMARA PRO [Suspect]
     Active Substance: ESTRADIOL\LEVONORGESTREL
     Dosage: UNK
     Route: 062

REACTIONS (9)
  - Adverse drug reaction [None]
  - Diarrhoea [None]
  - Anxiety [None]
  - Epigastric discomfort [None]
  - Throat clearing [None]
  - Cough [None]
  - Formication [None]
  - Menopause [None]
  - Headache [None]
